FAERS Safety Report 4481888-5 (Version None)
Quarter: 2004Q4

REPORT INFORMATION
  Report Type: 
  Country: None (occurrence: None)
  Receive Date: 20041020
  Receipt Date: 20041008
  Transmission Date: 20050328
  Serious: Yes (Hospitalization)
  Sender: FDA-Public Use
  Company Number: CH-SHR-03-016771

PATIENT
  Age: 18 Year
  Sex: Female
  Weight: 53 kg

DRUGS (1)
  1. YASMIN [Suspect]
     Indication: CONTRACEPTION
     Dosage: ORAL
     Route: 048
     Dates: start: 20030501

REACTIONS (7)
  - CAESAREAN SECTION [None]
  - CERVICAL INCOMPETENCE [None]
  - DRUG EXPOSURE DURING PREGNANCY [None]
  - PRE-ECLAMPSIA [None]
  - PREGNANCY ON ORAL CONTRACEPTIVE [None]
  - PREMATURE LABOUR [None]
  - TWIN PREGNANCY [None]
